FAERS Safety Report 17199655 (Version 1)
Quarter: 2019Q4

REPORT INFORMATION
  Report Type: Spontaneous
  Country: SI (occurrence: SI)
  Receive Date: 20191226
  Receipt Date: 20191226
  Transmission Date: 20200122
  Serious: Yes (Death)
  Sender: FDA-Public Use
  Company Number: SI-SUN PHARMACEUTICAL INDUSTRIES LTD-2019R1-214419

PATIENT
  Sex: Male

DRUGS (1)
  1. DEXAMETHASONE. [Suspect]
     Active Substance: DEXAMETHASONE
     Indication: MALIGNANT GLIOMA
     Dosage: UNK
     Route: 065

REACTIONS (9)
  - Gliomatosis cerebri [Fatal]
  - Aspergillus infection [Fatal]
  - Respiratory distress [Fatal]
  - Oropharyngeal candidiasis [Fatal]
  - Diffuse alveolar damage [Fatal]
  - Strongyloidiasis [Fatal]
  - Speech disorder [Fatal]
  - Condition aggravated [Fatal]
  - Glioblastoma [Fatal]
